FAERS Safety Report 7442006-4 (Version None)
Quarter: 2011Q2

REPORT INFORMATION
  Report Type: 
  Country: None (occurrence: None)
  Receive Date: 20110428
  Receipt Date: 20101119
  Transmission Date: 20111010
  Serious: No
  Sender: FDA-Public Use
  Company Number: US-ASTRAZENECA-2010SE48772

PATIENT
  Sex: Female

DRUGS (2)
  1. ZOMIG [Suspect]
     Dosage: 2 OF THE 5 MG ZOMIG SPACED 1.5 TO 2 HRS APART
     Route: 048
  2. ZOMIG [Suspect]
     Route: 048

REACTIONS (3)
  - MIGRAINE [None]
  - INCORRECT DOSE ADMINISTERED [None]
  - DRUG DOSE OMISSION [None]
